FAERS Safety Report 5639852-6 (Version None)
Quarter: 2008Q1

REPORT INFORMATION
  Report Type: 
  Country: None (occurrence: None)
  Receive Date: 20080226
  Receipt Date: 20080226
  Transmission Date: 20080703
  Serious: Yes (Hospitalization)
  Sender: FDA-Public Use
  Company Number: None

PATIENT
  Age: 45 Year
  Sex: Female
  Weight: 102.0593 kg

DRUGS (1)
  1. CHANTIX [Suspect]
     Indication: SMOKING CESSATION THERAPY
     Dosage: 1MG 2 TIMES A DAY PO  (DURATION: 2-3- WEEKS)
     Route: 048
     Dates: start: 20080109, end: 20080201

REACTIONS (2)
  - DEPRESSION [None]
  - SUICIDAL IDEATION [None]
